FAERS Safety Report 8459677-6 (Version None)
Quarter: 2012Q2

REPORT INFORMATION
  Report Type: 
  Country: None (occurrence: None)
  Receive Date: 20120622
  Receipt Date: 20120619
  Transmission Date: 20120825
  Serious: Yes (Hospitalization)
  Sender: FDA-Public Use
  Company Number: US-GILEAD-2012-0055139

PATIENT
  Sex: Female

DRUGS (4)
  1. ADCIRCA [Concomitant]
  2. MORPHINE [Suspect]
  3. EPOPROSTENOL SODIUM [Concomitant]
  4. LETAIRIS [Suspect]
     Indication: PRODUCT USED FOR UNKNOWN INDICATION
     Dosage: 10 MG, UNK
     Route: 048
     Dates: start: 20110722

REACTIONS (2)
  - UNEVALUABLE EVENT [None]
  - DYSPNOEA [None]
